FAERS Safety Report 24760343 (Version 1)
Quarter: 2024Q4

REPORT INFORMATION
  Report Type: Spontaneous
  Country: US (occurrence: None)
  Receive Date: 20241219
  Receipt Date: 20241219
  Transmission Date: 20250114
  Serious: Yes (Other)
  Sender: Public
  Company Number: None

PATIENT
  Age: 3 Year
  Sex: Male
  Weight: 14.9 kg

DRUGS (1)
  1. ZOLGENSMA [Suspect]
     Active Substance: ONASEMNOGENE ABEPARVOVEC-XIOI
     Indication: Spinal muscular atrophy
     Dosage: OTHER FREQUENCY : ONCE;?
     Route: 042
     Dates: start: 20210127, end: 20210127

REACTIONS (1)
  - Drug ineffective [None]
